FAERS Safety Report 21854076 (Version 1)
Quarter: 2023Q1

REPORT INFORMATION
  Report Type: Spontaneous
  Country: US (occurrence: US)
  Receive Date: 20230112
  Receipt Date: 20230112
  Transmission Date: 20230417
  Serious: Yes (Death, Hospitalization)
  Sender: FDA-Public Use
  Company Number: US-BAYER-2023A002562

PATIENT
  Age: 15 Year
  Sex: Female

DRUGS (11)
  1. LORATADINE [Suspect]
     Active Substance: LORATADINE
     Route: 048
  2. BUPROPION [Suspect]
     Active Substance: BUPROPION
  3. IRON [Suspect]
     Active Substance: IRON
  4. CYCLOBENZAPRINE [Suspect]
     Active Substance: CYCLOBENZAPRINE
  5. SERTRALINE [Suspect]
     Active Substance: SERTRALINE HYDROCHLORIDE
  6. FLUOXETINE [Suspect]
     Active Substance: FLUOXETINE HYDROCHLORIDE
  7. TRAZODONE [Suspect]
     Active Substance: TRAZODONE HYDROCHLORIDE
  8. SPIRONOLACTONE [Suspect]
     Active Substance: SPIRONOLACTONE
  9. ARIPIPRAZOLE [Suspect]
     Active Substance: ARIPIPRAZOLE
  10. MELATONIN [Suspect]
     Active Substance: MELATONIN
  11. CHOLECALCIFEROL [Suspect]
     Active Substance: CHOLECALCIFEROL

REACTIONS (1)
  - Toxicity to various agents [Fatal]
